FAERS Safety Report 10642510 (Version 1)
Quarter: 2014Q4

REPORT INFORMATION
  Report Type: Spontaneous
  Country: US (occurrence: None)
  Receive Date: 20141208
  Receipt Date: 20141208
  Transmission Date: 20150529
  Serious: Yes (Disabling)
  Sender: FDA-Public Use
  Company Number: None

PATIENT
  Age: 62 Year
  Sex: Female
  Weight: 55.34 kg

DRUGS (1)
  1. RADIOACTIVE IODINE [Suspect]
     Active Substance: SODIUM IODIDE I-131
     Indication: SCAN THYROID GLAND
     Dosage: 2 PILLS
     Route: 048

REACTIONS (4)
  - Eye pain [None]
  - Ocular hyperaemia [None]
  - Lacrimation increased [None]
  - Exophthalmos [None]

NARRATIVE: CASE EVENT DATE: 20141128
